FAERS Safety Report 5654120-4 (Version None)
Quarter: 2008Q1

REPORT INFORMATION
  Report Type: 
  Country: None (occurrence: None)
  Receive Date: 20080306
  Receipt Date: 20080225
  Transmission Date: 20080703
  Serious: Yes (Other)
  Sender: FDA-Public Use
  Company Number: JP-PFIZER INC-2008020078

PATIENT
  Age: 57 Year
  Sex: Male

DRUGS (2)
  1. ATARAX [Suspect]
     Route: 048
  2. MINOMYCIN [Interacting]
     Route: 048

REACTIONS (2)
  - DRUG INTERACTION [None]
  - SYNCOPE [None]
